FAERS Safety Report 5975822-6 (Version None)
Quarter: 2008Q4

REPORT INFORMATION
  Report Type: 
  Country: None (occurrence: None)
  Receive Date: 20081202
  Receipt Date: 20080211
  Transmission Date: 20090506
  Serious: No
  Sender: FDA-Public Use
  Company Number: US-AMGEN-KDL262287

PATIENT
  Sex: Female
  Weight: 81.7 kg

DRUGS (4)
  1. ENBREL [Suspect]
     Indication: PSORIASIS
     Route: 058
     Dates: start: 20071217, end: 20080130
  2. LEXAPRO [Concomitant]
  3. KLONOPIN [Concomitant]
  4. ACIPHEX [Concomitant]

REACTIONS (2)
  - PETECHIAE [None]
  - WHITE BLOOD CELL COUNT DECREASED [None]
